FAERS Safety Report 5325676-6 (Version None)
Quarter: 2007Q2

REPORT INFORMATION
  Report Type: 
  Country: None (occurrence: None)
  Receive Date: 20070509
  Receipt Date: 20070430
  Transmission Date: 20071010
  Serious: Yes (Other)
  Sender: FDA-Public Use
  Company Number: TAP2007Q00359

PATIENT
  Age: 44 Year
  Sex: Female
  Weight: 77.27 kg

DRUGS (2)
  1. LUPRON DEPOT-3 [Suspect]
     Indication: ENDOMETRIOSIS
     Dosage: 11.25 MG, ONCE, INTRAMUSCULAR
     Route: 030
     Dates: start: 20060901, end: 20060901
  2. DORYX [Concomitant]

REACTIONS (14)
  - ABDOMINAL PAIN [None]
  - ACTIVITIES OF DAILY LIVING IMPAIRED [None]
  - AMNESIA [None]
  - ARTHRALGIA [None]
  - BACK PAIN [None]
  - DEPRESSION [None]
  - HOT FLUSH [None]
  - HYPERTHYROIDISM [None]
  - IMPAIRED DRIVING ABILITY [None]
  - INTERVERTEBRAL DISC PROTRUSION [None]
  - MIGRAINE [None]
  - OVARIAN CYST [None]
  - PAIN IN EXTREMITY [None]
  - WEIGHT INCREASED [None]
